FAERS Safety Report 6676865-X (Version None)
Quarter: 2010Q2

REPORT INFORMATION
  Report Type: 
  Country: None (occurrence: None)
  Receive Date: 20100412
  Receipt Date: 20100330
  Transmission Date: 20101027
  Serious: Yes (Hospitalization)
  Sender: FDA-Public Use
  Company Number: CL-ROCHE-695718

PATIENT
  Sex: Male
  Weight: 72 kg

DRUGS (2)
  1. INTERFERON ALFA [Suspect]
     Route: 058
     Dates: start: 20090727, end: 20100202
  2. BEVACIZUMAB [Suspect]
     Route: 042
     Dates: start: 20090727, end: 20100202

REACTIONS (1)
  - ANAL FISTULA [None]
